FAERS Safety Report 23347754 (Version 1)
Quarter: 2023Q4

REPORT INFORMATION
  Report Type: Spontaneous
  Country: US (occurrence: US)
  Receive Date: 20231228
  Receipt Date: 20231228
  Transmission Date: 20240110
  Serious: No
  Sender: FDA-Public Use
  Company Number: US-PFIZER INC-PV202300206294

PATIENT
  Age: 49 Year
  Sex: Female

DRUGS (1)
  1. IBRANCE [Suspect]
     Active Substance: PALBOCICLIB
     Dosage: UNK

REACTIONS (8)
  - Fatigue [Recovering/Resolving]
  - Diarrhoea [Unknown]
  - Dyspnoea [Unknown]
  - Dizziness [Unknown]
  - Heart rate increased [Unknown]
  - Abdominal pain upper [Recovered/Resolved]
  - Nasopharyngitis [Unknown]
  - Productive cough [Unknown]
